FAERS Safety Report 25773709 (Version 1)
Quarter: 2025Q3

REPORT INFORMATION
  Report Type: Spontaneous
  Country: CA (occurrence: CA)
  Receive Date: 20250908
  Receipt Date: 20250908
  Transmission Date: 20251020
  Serious: Yes (Death, Hospitalization)
  Sender: PFIZER
  Company Number: CA-PFIZER INC-202500176719

PATIENT
  Age: 84 Year
  Sex: Female
  Weight: 50 kg

DRUGS (22)
  1. VYNDAMAX [Suspect]
     Active Substance: TAFAMIDIS
     Indication: Acquired ATTR amyloidosis
     Dosage: 61 MG, 1 EVERY 1 DAY
     Route: 048
  2. METHOTREXATE [Suspect]
     Active Substance: METHOTREXATE
     Indication: Rheumatoid arthritis
     Dosage: 7.5 MG, 1 EVERY 1 WEEK
     Route: 048
  3. AMLODIPINE [Concomitant]
     Active Substance: AMLODIPINE BESYLATE
  4. CALCIUM\CHOLECALCIFEROL [Concomitant]
     Active Substance: CALCIUM\CHOLECALCIFEROL
  5. DEXILANT [Concomitant]
     Active Substance: DEXLANSOPRAZOLE
  6. DOCUSATE SODIUM [Concomitant]
     Active Substance: DOCUSATE SODIUM
  7. DULOXETINE HYDROCHLORIDE [Concomitant]
     Active Substance: DULOXETINE HYDROCHLORIDE
     Route: 048
  8. FENTANYL [Concomitant]
     Active Substance: FENTANYL
  9. FERROUS SULFATE [Concomitant]
     Active Substance: FERROUS SULFATE
  10. FOLIC ACID [Concomitant]
     Active Substance: FOLIC ACID
  11. FUROSEMIDE [Concomitant]
     Active Substance: FUROSEMIDE
  12. HYDROXYCHLOROQUINE [Concomitant]
     Active Substance: HYDROXYCHLOROQUINE
  13. EDOXABAN TOSYLATE [Concomitant]
     Active Substance: EDOXABAN TOSYLATE
  14. MIRTAZAPINE [Concomitant]
     Active Substance: MIRTAZAPINE
  15. MUPIROCIN [Concomitant]
     Active Substance: MUPIROCIN
  16. TRIAMCINOLONE ACETONIDE [Concomitant]
     Active Substance: TRIAMCINOLONE ACETONIDE
  17. PRAVASTATIN SODIUM [Concomitant]
     Active Substance: PRAVASTATIN SODIUM
  18. PROLIA [Concomitant]
     Active Substance: DENOSUMAB
     Route: 058
  19. SIMPONI [Concomitant]
     Active Substance: GOLIMUMAB
     Route: 058
  20. TRAZODONE [Concomitant]
     Active Substance: TRAZODONE HYDROCHLORIDE
  21. TYLENOL [Concomitant]
     Active Substance: ACETAMINOPHEN
  22. VALSARTAN [Concomitant]
     Active Substance: VALSARTAN

REACTIONS (13)
  - Acute kidney injury [Fatal]
  - Altered state of consciousness [Fatal]
  - Anaemia [Fatal]
  - Asthenia [Fatal]
  - Dehydration [Fatal]
  - Fatigue [Fatal]
  - General physical health deterioration [Fatal]
  - Hypophagia [Fatal]
  - Oral disorder [Fatal]
  - Oral pain [Fatal]
  - Pancytopenia [Fatal]
  - Pneumonia [Fatal]
  - Weight decreased [Fatal]
